FAERS Safety Report 19059142 (Version 1)
Quarter: 2021Q1

REPORT INFORMATION
  Report Type: Spontaneous
  Country: GB (occurrence: GB)
  Receive Date: 20210325
  Receipt Date: 20210325
  Transmission Date: 20210420
  Serious: Yes (Life-Threatening)
  Sender: FDA-Public Use
  Company Number: GB-TEVA-2021-GB-1888657

PATIENT
  Age: 66 Year
  Sex: Female

DRUGS (7)
  1. ATENOLOL. [Concomitant]
     Active Substance: ATENOLOL
     Indication: ILL-DEFINED DISORDER
     Route: 065
  2. PREGABALIN. [Concomitant]
     Active Substance: PREGABALIN
     Indication: ILL-DEFINED DISORDER
     Route: 065
  3. RISPERIDONE. [Concomitant]
     Active Substance: RISPERIDONE
     Indication: ILL-DEFINED DISORDER
     Route: 065
  4. ZAPAIN [Concomitant]
     Active Substance: ACETAMINOPHEN\CODEINE PHOSPHATE
     Indication: ILL-DEFINED DISORDER
     Route: 065
  5. OLANZAPINE. [Suspect]
     Active Substance: OLANZAPINE
     Indication: DEPRESSION
     Dosage: 5MG
     Route: 048
     Dates: start: 20210210, end: 20210225
  6. FLUOXETINE [Concomitant]
     Active Substance: FLUOXETINE HYDROCHLORIDE
     Indication: ILL-DEFINED DISORDER
     Route: 065
  7. PERINDOPRIL ARGININE [Concomitant]
     Active Substance: PERINDOPRIL ARGININE
     Indication: ILL-DEFINED DISORDER

REACTIONS (1)
  - Pulmonary embolism [Recovering/Resolving]

NARRATIVE: CASE EVENT DATE: 20210225
